FAERS Safety Report 8732848 (Version 2)
Quarter: 2012Q4

REPORT INFORMATION
  Report Type: 
  Country: US (occurrence: US)
  Receive Date: 20120820
  Receipt Date: 20120903
  Transmission Date: 20130627
  Serious: Yes (Hospitalization, Other)
  Sender: FDA-Public Use
  Company Number: US-PFIZER INC-2012198961

PATIENT
  Age: 30 Year
  Sex: Male
  Weight: 81.63 kg

DRUGS (6)
  1. LYRICA [Suspect]
     Indication: EPILEPSY
     Dosage: 25 mg, daily
     Route: 048
     Dates: start: 2005
  2. LYRICA [Suspect]
     Dosage: 75 mg, 3x/day
     Route: 048
     Dates: start: 2011
  3. LYRICA [Suspect]
     Dosage: 100 mg, 3x/day
     Route: 048
  4. LYRICA [Suspect]
     Dosage: 150 mg, 2x/day
     Route: 048
  5. LYRICA [Suspect]
     Dosage: 300 mg, 2x/day
     Route: 048
     Dates: start: 20120501
  6. LACOSAMIDE [Suspect]
     Indication: EPILEPSY
     Dosage: 200 mg,daily
     Route: 048
     Dates: start: 201204

REACTIONS (6)
  - Convulsion [Not Recovered/Not Resolved]
  - Fall [Unknown]
  - Jaw fracture [Unknown]
  - Injury [Unknown]
  - Swelling face [Unknown]
  - Pain in jaw [Recovered/Resolved]
